FAERS Safety Report 6024339-1 (Version None)
Quarter: 2008Q4

REPORT INFORMATION
  Report Type: 
  Country: None (occurrence: None)
  Receive Date: 20081222
  Receipt Date: 20080825
  Transmission Date: 20090506
  Serious: No
  Sender: FDA-Public Use
  Company Number: ALL1-2008-02392

PATIENT
  Age: 10 Year
  Sex: Female

DRUGS (3)
  1. VYVANSE [Suspect]
     Indication: ATTENTION DEFICIT/HYPERACTIVITY DISORDER
     Dosage: 20 MG, 1X/DAY: QD, ORAL : 20 MG, 1X/DAY:QD, ORAL
     Route: 048
     Dates: start: 20080822, end: 20080823
  2. VYVANSE [Suspect]
     Indication: ATTENTION DEFICIT/HYPERACTIVITY DISORDER
     Dosage: 20 MG, 1X/DAY: QD, ORAL : 20 MG, 1X/DAY:QD, ORAL
     Route: 048
     Dates: start: 20080825
  3. PROZAC [Concomitant]

REACTIONS (1)
  - ABDOMINAL PAIN UPPER [None]
